FAERS Safety Report 5332832-X (Version None)
Quarter: 2007Q2

REPORT INFORMATION
  Report Type: 
  Country: None (occurrence: None)
  Receive Date: 20070521
  Receipt Date: 20070504
  Transmission Date: 20071010
  Serious: Yes (Other)
  Sender: FDA-Public Use
  Company Number: PAR_01554_2007

PATIENT
  Age: 13 Year
  Sex: Female

DRUGS (5)
  1. IBUPROFEN [Suspect]
  2. ASPIRIN [Suspect]
     Dosage: (ORAL)
     Route: 048
  3. ACETAMINOPHEN [Suspect]
  4. SODIUM SALICYLATE ECT [Suspect]
  5. POTASSIUM BICARBONATE (POTASSIUM BICARBONATE) [Suspect]

REACTIONS (8)
  - ANAPHYLACTIC REACTION [None]
  - ANGIOEDEMA [None]
  - CONJUNCTIVITIS [None]
  - DYSPNOEA [None]
  - PRURITUS GENERALISED [None]
  - RHINITIS [None]
  - URTICARIA GENERALISED [None]
  - WHEEZING [None]
